FAERS Safety Report 4548540-9 (Version None)
Quarter: 2005Q1

REPORT INFORMATION
  Report Type: 
  Country: None (occurrence: None)
  Receive Date: 20050106
  Receipt Date: 20041221
  Transmission Date: 20050727
  Serious: Yes (Other)
  Sender: FDA-Public Use
  Company Number: 200415828BCC

PATIENT
  Age: 21 Year
  Sex: Female
  Weight: 79.8331 kg

DRUGS (6)
  1. ORIGINAL ALKA-SELTZER TABLETS [Suspect]
     Dosage: IRR, ORAL
     Route: 048
     Dates: start: 20000101
  2. COUMADIN [Concomitant]
  3. DIAMOX [Concomitant]
  4. CALCIUM WITH VITAMIN D [Concomitant]
  5. PROTONIX [Concomitant]
  6. DIAMOX [Concomitant]

REACTIONS (15)
  - BENIGN INTRACRANIAL HYPERTENSION [None]
  - BLOOD PRESSURE DECREASED [None]
  - CAESAREAN SECTION [None]
  - DRUG DEPENDENCE [None]
  - DRUG EXPOSURE DURING PREGNANCY [None]
  - DYSPNOEA [None]
  - GASTROOESOPHAGEAL REFLUX DISEASE [None]
  - INTESTINAL OBSTRUCTION [None]
  - MOOD ALTERED [None]
  - PICA [None]
  - POST PROCEDURAL COMPLICATION [None]
  - PRE-ECLAMPSIA [None]
  - PREGNANCY [None]
  - PULMONARY THROMBOSIS [None]
  - THROMBOSIS [None]
